FAERS Safety Report 8030313-6 (Version None)
Quarter: 2012Q1

REPORT INFORMATION
  Report Type: 
  Country: None (occurrence: None)
  Receive Date: 20120109
  Receipt Date: 20120106
  Transmission Date: 20120608
  Serious: Yes (Death)
  Sender: FDA-Public Use
  Company Number: PHHY2011AU58278

PATIENT
  Sex: Female
  Weight: 50 kg

DRUGS (4)
  1. MAXOLON [Concomitant]
     Indication: VOMITING
     Dosage: 10 MG, AS REQUIRED
     Route: 030
     Dates: start: 20111228, end: 20120103
  2. ZOLEDRONOC ACID [Suspect]
     Dosage: 5 MG,
     Route: 042
     Dates: start: 20100318
  3. HYOSCINE [Concomitant]
     Indication: VOMITING
     Dosage: 0.4 MG, 4 HOURS AS REQUIRED
     Route: 058
     Dates: start: 20111228, end: 20120103
  4. MORPHINE [Concomitant]
     Dosage: 2 TO 5 MG 4 HOUR AS REQUIRED
     Route: 058
     Dates: start: 20111228, end: 20120103

REACTIONS (3)
  - DEMENTIA ALZHEIMER'S TYPE [None]
  - HYPOPHAGIA [None]
  - GENERAL PHYSICAL HEALTH DETERIORATION [None]
